FAERS Safety Report 22212552 (Version 1)
Quarter: 2023Q2

REPORT INFORMATION
  Report Type: Spontaneous
  Country: FR (occurrence: FR)
  Receive Date: 20230414
  Receipt Date: 20230414
  Transmission Date: 20230721
  Serious: Yes (Hospitalization, Other)
  Sender: FDA-Public Use
  Company Number: FR-ANIPHARMA-2023-FR-000077

PATIENT
  Age: 72 Year
  Sex: Male

DRUGS (8)
  1. CANDESARTAN CILEXETIL [Suspect]
     Active Substance: CANDESARTAN CILEXETIL
     Indication: Hypertension
     Dosage: 8 MG DAILY
     Route: 048
     Dates: start: 201709, end: 201709
  2. MONTELUKAST [Suspect]
     Active Substance: MONTELUKAST SODIUM
     Dosage: 1 DF DAILY
     Route: 048
     Dates: start: 201709, end: 201709
  3. ALBUTEROL [Suspect]
     Active Substance: ALBUTEROL
     Dosage: 1 DF INT
     Route: 065
     Dates: start: 201709, end: 201709
  4. ATORVASTATIN [Suspect]
     Active Substance: ATORVASTATIN
     Dosage: 10 MG DAILY
     Route: 048
     Dates: start: 201709, end: 201709
  5. URAPIDIL [Suspect]
     Active Substance: URAPIDIL
     Dosage: 90 MG DAILY
     Route: 048
     Dates: start: 201709, end: 201709
  6. SERETIDE [Suspect]
     Active Substance: FLUTICASONE PROPIONATE\SALMETEROL XINAFOATE
     Dosage: 2 DF DAILY
     Route: 048
     Dates: start: 201709, end: 201709
  7. NICARDIPINE [Suspect]
     Active Substance: NICARDIPINE
     Dosage: 100 MG DAILY
     Route: 048
     Dates: start: 201709, end: 201709
  8. SPIRIVA [Suspect]
     Active Substance: TIOTROPIUM BROMIDE MONOHYDRATE
     Dosage: 1 DF DAILY
     Route: 048
     Dates: start: 201709, end: 201709

REACTIONS (2)
  - Haemolytic anaemia [Unknown]
  - Endocarditis [Unknown]

NARRATIVE: CASE EVENT DATE: 20170912
